FAERS Safety Report 25730048 (Version 1)
Quarter: 2025Q3

REPORT INFORMATION
  Report Type: Spontaneous
  Country: US (occurrence: US)
  Receive Date: 20250827
  Receipt Date: 20250827
  Transmission Date: 20251021
  Serious: No
  Sender: SANOFI AVENTIS
  Company Number: US-SA-2025SA256199

PATIENT
  Sex: Female
  Weight: 66.82 kg

DRUGS (9)
  1. DUPIXENT [Suspect]
     Active Substance: DUPILUMAB
     Indication: Dermatitis atopic
     Dosage: 300 MG, QOW
     Route: 058
  2. TOPIRAMATE [Concomitant]
     Active Substance: TOPIRAMATE
  3. FAMOTIDINE [Concomitant]
     Active Substance: FAMOTIDINE
  4. MIRTAZAPINE [Concomitant]
     Active Substance: MIRTAZAPINE
  5. LORAZEPAM [Concomitant]
     Active Substance: LORAZEPAM
  6. TRAZODONE HCL [Concomitant]
     Active Substance: TRAZODONE HYDROCHLORIDE
  7. VITAMINS NOS [Concomitant]
     Active Substance: VITAMINS
  8. FERROUS GLUCONATE [Concomitant]
     Active Substance: FERROUS GLUCONATE
  9. CALCIUM [Concomitant]
     Active Substance: CALCIUM

REACTIONS (1)
  - Drug ineffective [Unknown]
